FAERS Safety Report 5412530-4 (Version None)
Quarter: 2007Q3

REPORT INFORMATION
  Report Type: 
  Country: None (occurrence: None)
  Receive Date: 20070813
  Receipt Date: 20070802
  Transmission Date: 20080115
  Serious: Yes (Death, Hospitalization)
  Sender: FDA-Public Use
  Company Number: B0473505A

PATIENT
  Age: 39 Year
  Sex: Female
  Weight: 63.6 kg

DRUGS (2)
  1. LAPATINIB [Suspect]
     Dosage: 1250MGM2 PER DAY
     Route: 048
     Dates: start: 20070403, end: 20070626
  2. CAPECITABINE [Suspect]
     Dosage: 2000MGM2 PER DAY
     Route: 048
     Dates: start: 20070403, end: 20070601

REACTIONS (7)
  - ATRIAL FLUTTER [None]
  - DYSPNOEA [None]
  - LEFT VENTRICULAR DYSFUNCTION [None]
  - PALPITATIONS [None]
  - PERICARDIAL EFFUSION [None]
  - PERICARDITIS [None]
  - PYREXIA [None]
